FAERS Safety Report 6382379-7 (Version None)
Quarter: 2009Q3

REPORT INFORMATION
  Report Type: 
  Country: None (occurrence: None)
  Receive Date: 20090928
  Receipt Date: 20090928
  Transmission Date: 20100115
  Serious: Yes (Hospitalization, Other)
  Sender: FDA-Public Use
  Company Number: None

PATIENT
  Sex: Female
  Weight: 48.0813 kg

DRUGS (2)
  1. DIPHENOXYLATE HCL AND ATROPINE SULFATE [Suspect]
     Indication: COELIAC DISEASE
     Dosage: 2 MG 1-2 PER DAY ON + OFF FOR YEARS, BUT SPECIALLY BEGINNING W/ NEW BOTTLE ON 12/1/08.
     Dates: start: 20081201
  2. DIPHENOXYLATE HCL AND ATROPINE SULFATE [Suspect]
     Indication: DIARRHOEA
     Dosage: 2 MG 1-2 PER DAY ON + OFF FOR YEARS, BUT SPECIALLY BEGINNING W/ NEW BOTTLE ON 12/1/08.
     Dates: start: 20081201

REACTIONS (7)
  - CARDIAC DISORDER [None]
  - DYSPEPSIA [None]
  - EXTRASYSTOLES [None]
  - MYOCARDIAL INFARCTION [None]
  - OESOPHAGEAL INFECTION [None]
  - PAIN [None]
  - PALPITATIONS [None]
